FAERS Safety Report 15818990 (Version 1)
Quarter: 2019Q1

REPORT INFORMATION
  Report Type: Spontaneous
  Country: NL (occurrence: NL)
  Receive Date: 20190114
  Receipt Date: 20190114
  Transmission Date: 20190417
  Serious: Yes (Life-Threatening)
  Sender: FDA-Public Use
  Company Number: NL-TEVA-2019-NL-998149

PATIENT
  Age: 60 Year
  Sex: Female
  Weight: 60 kg

DRUGS (9)
  1. OCULOTECT 50MG/ML OOGD 10 ML [Concomitant]
     Dosage: BY APPOINTMENT
  2. MACROGOL CITROEN PDR V DRANK SACHET [Concomitant]
     Dosage: 1 DOSAGE FORMS DAILY; 1 DD 1
  3. NITROFURANTOINE 100 MG [Concomitant]
     Dosage: 100 MILLIGRAM DAILY; 1 DD 1
  4. HALDOL [Interacting]
     Active Substance: HALOPERIDOL
     Indication: SCHIZOPHRENIA
     Dosage: 1X PER 3 WEEKS 75 MG
     Dates: start: 20170729, end: 20181009
  5. CITALOPRAM OMHULDE TABLET, 20 MG (MILLIGRAM) [Suspect]
     Active Substance: CITALOPRAM HYDROBROMIDE
     Indication: ANXIETY
     Dosage: 20 MILLIGRAM DAILY; 20 MG 1DD1
     Dates: start: 20181124, end: 20181208
  6. COLECALCIFEROL 5600IE [Concomitant]
     Dosage: BY APPOINTMENT
  7. VITAMINE B COMPLEX TABL [Concomitant]
     Dosage: 1 DOSAGE FORMS DAILY; 1 DD 1
  8. BIPERIDEEN 2 MG [Concomitant]
     Dosage: BY APPOINTMENT
  9. LORAZEPAM 2,5 MG [Concomitant]
     Dosage: 2 MILLIGRAM DAILY; 1 DD 1

REACTIONS (3)
  - Electrocardiogram QT prolonged [Recovered/Resolved]
  - Drug interaction [Recovered/Resolved]
  - Hypokalaemia [Recovered/Resolved]

NARRATIVE: CASE EVENT DATE: 20181207
